FAERS Safety Report 5856782-5 (Version None)
Quarter: 2008Q3

REPORT INFORMATION
  Report Type: 
  Country: None (occurrence: None)
  Receive Date: 20080822
  Receipt Date: 20080822
  Transmission Date: 20090109
  Serious: Yes (Disabling)
  Sender: FDA-Public Use
  Company Number: None

PATIENT
  Age: 74 Year
  Sex: Male
  Weight: 63.9572 kg

DRUGS (9)
  1. VARDENAFIL 10 MG, BAYER PHARMACEUTICALS [Suspect]
     Indication: ERECTILE DYSFUNCTION
     Dosage: 1/2 TABLET OR 5 MG PRN 047
     Dates: start: 20080806
  2. ALBUTEROL [Concomitant]
  3. IPRATROPIUM BROMIDE [Concomitant]
  4. AMITRIPTYLINE HCL [Concomitant]
  5. LISINOPRIL [Concomitant]
  6. OXYCODONE HCL [Concomitant]
  7. APAP TAB [Concomitant]
  8. SIMVASTIN [Concomitant]
  9. TERAZOSIN HCL [Concomitant]

REACTIONS (1)
  - DEAFNESS [None]
